FAERS Safety Report 6635670-0 (Version None)
Quarter: 2010Q1

REPORT INFORMATION
  Report Type: 
  Country: None (occurrence: None)
  Receive Date: 20100312
  Receipt Date: 20100312
  Transmission Date: 20100710
  Serious: Yes (Hospitalization)
  Sender: FDA-Public Use
  Company Number: None

PATIENT
  Sex: Female
  Weight: 78.1 kg

DRUGS (6)
  1. BORTEZOMIB [Suspect]
     Indication: NEUTRALISING ANTIBODIES
     Dosage: 2.5 MG 4 DOSES IV 2.6 2 DOSES IV
     Route: 042
     Dates: start: 20100201
  2. BORTEZOMIB [Suspect]
     Indication: NEUTRALISING ANTIBODIES
     Dosage: 2.5 MG 4 DOSES IV 2.6 2 DOSES IV
     Route: 042
     Dates: start: 20100204
  3. BORTEZOMIB [Suspect]
     Indication: NEUTRALISING ANTIBODIES
     Dosage: 2.5 MG 4 DOSES IV 2.6 2 DOSES IV
     Route: 042
     Dates: start: 20100208
  4. BORTEZOMIB [Suspect]
     Indication: NEUTRALISING ANTIBODIES
     Dosage: 2.5 MG 4 DOSES IV 2.6 2 DOSES IV
     Route: 042
     Dates: start: 20100211
  5. BORTEZOMIB [Suspect]
     Indication: NEUTRALISING ANTIBODIES
     Dosage: 2.5 MG 4 DOSES IV 2.6 2 DOSES IV
     Route: 042
     Dates: start: 20100222
  6. BORTEZOMIB [Suspect]
     Indication: NEUTRALISING ANTIBODIES
     Dosage: 2.5 MG 4 DOSES IV 2.6 2 DOSES IV
     Route: 042
     Dates: start: 20100225

REACTIONS (7)
  - DEHYDRATION [None]
  - HYPOPHAGIA [None]
  - HYPOTENSION [None]
  - NAUSEA [None]
  - RENAL DISORDER [None]
  - VOMITING [None]
  - WEIGHT DECREASED [None]
